FAERS Safety Report 21171682 (Version 16)
Quarter: 2025Q1

REPORT INFORMATION
  Report Type: Spontaneous
  Country: US (occurrence: US)
  Receive Date: 20220804
  Receipt Date: 20250113
  Transmission Date: 20250408
  Serious: Yes (Hospitalization, Other)
  Sender: PFIZER
  Company Number: US-PFIZER INC-PV202200035790

PATIENT
  Age: 69 Year
  Sex: Female
  Weight: 72.562 kg

DRUGS (4)
  1. PREMPRO [Suspect]
     Active Substance: ESTROGENS, CONJUGATED\MEDROXYPROGESTERONE ACETATE
     Indication: Hot flush
     Dosage: TAKE EVERYDAY 1
  2. PREMPRO [Suspect]
     Active Substance: ESTROGENS, CONJUGATED\MEDROXYPROGESTERONE ACETATE
     Indication: Menopause
  3. PREMPRO [Suspect]
     Active Substance: ESTROGENS, CONJUGATED\MEDROXYPROGESTERONE ACETATE
     Dosage: 1 TABLET BY MOUTH DAILY
     Route: 048
  4. PREMPRO [Suspect]
     Active Substance: ESTROGENS, CONJUGATED\MEDROXYPROGESTERONE ACETATE
     Dosage: TAKE 1 TABLET BY MOUTH 1 (ONE) TIME EACH DAY
     Route: 048

REACTIONS (5)
  - Drug dependence [Not Recovered/Not Resolved]
  - Nervousness [Not Recovered/Not Resolved]
  - Product dispensing error [Unknown]
  - Product prescribing error [Unknown]
  - Intercepted product selection error [Unknown]
